FAERS Safety Report 25777203 (Version 4)
Quarter: 2025Q3

REPORT INFORMATION
  Report Type: Spontaneous
  Country: US (occurrence: US)
  Receive Date: 20250909
  Receipt Date: 20250918
  Transmission Date: 20251020
  Serious: Yes (Other)
  Sender: BRISTOL-MYERS SQUIBB COMPANY
  Company Number: US-BRISTOL-MYERS SQUIBB COMPANY-2025-122376

PATIENT
  Age: 75 Year
  Sex: Male

DRUGS (3)
  1. REVLIMID [Suspect]
     Active Substance: LENALIDOMIDE
     Indication: Plasma cell myeloma
     Dosage: 21 DAYS ON 7 OFF
  2. REVLIMID [Suspect]
     Active Substance: LENALIDOMIDE
     Dosage: QD
  3. REVLIMID [Suspect]
     Active Substance: LENALIDOMIDE
     Dates: start: 20250915

REACTIONS (3)
  - Laboratory test abnormal [Unknown]
  - Neuropathy peripheral [Unknown]
  - Protein total abnormal [Unknown]
